FAERS Safety Report 10190991 (Version 3)
Quarter: 2014Q3

REPORT INFORMATION
  Report Type: Spontaneous
  Country: BR (occurrence: BR)
  Receive Date: 20140523
  Receipt Date: 20140811
  Transmission Date: 20150326
  Serious: Yes (Hospitalization)
  Sender: FDA-Public Use
  Company Number: BR-UCBSA-121572

PATIENT
  Age: 74 Year
  Sex: Female

DRUGS (15)
  1. PREDNISONE. [Concomitant]
     Active Substance: PREDNISONE
     Indication: RHEUMATOID ARTHRITIS
     Dosage: 20 MG AT UNKNWON FREQUENCY
     Route: 048
     Dates: start: 2010
  2. CIMZIA [Suspect]
     Active Substance: CERTOLIZUMAB PEGOL
     Indication: RHEUMATOID ARTHRITIS
     Dosage: AT UNKNOWN DOSE AND FREQUENCY ( STRENGTH:200MG/ML)
     Route: 058
     Dates: end: 20140316
  3. OMEPRAZOLE. [Suspect]
     Active Substance: OMEPRAZOLE
     Dosage: 20 MG AT UNKNOWN FREQUENCY
     Route: 048
  4. METHOTREXATE [Concomitant]
     Active Substance: METHOTREXATE
     Indication: RHEUMATOID ARTHRITIS
     Dosage: 2.5 MG, WEEKLY (QW) ONCE A WEEK
     Route: 048
     Dates: start: 2010
  5. LOSARTAN [Concomitant]
     Active Substance: LOSARTAN
     Indication: HYPERTENSION
     Dosage: 50 MG (DAILY)
     Route: 048
  6. METOPROLOL SUCCINATE. [Suspect]
     Active Substance: METOPROLOL SUCCINATE
     Indication: HYPERTENSION
     Dosage: AT UNKNOWN DOSE DAILY (STRENGTH 50MG)
     Route: 048
  7. PARACETAMOL [Concomitant]
     Active Substance: ACETAMINOPHEN
     Indication: PAIN
     Dosage: AT UNKNOWN DOSE AND FREQUENCY
     Route: 048
     Dates: start: 2010, end: 201405
  8. FOLIC ACID. [Concomitant]
     Active Substance: FOLIC ACID
     Indication: PROPHYLAXIS
     Dosage: 5 MG AT UNKNOWN FREQUENCY
     Route: 048
     Dates: start: 2010
  9. NIMESULIDE [Concomitant]
     Active Substance: NIMESULIDE
     Indication: RHEUMATOID ARTHRITIS
     Dosage: AT UNKNOWN DOSE AND FREQUENCY
     Route: 048
     Dates: start: 2010, end: 2014
  10. ALENDRONATE SODIUM. [Concomitant]
     Active Substance: ALENDRONATE SODIUM
     Indication: PROPHYLAXIS
     Dosage: 60 MG AT UNKNOWN FREQUENCY
     Route: 048
     Dates: start: 2010
  11. PURAN [Concomitant]
     Active Substance: LEVOTHYROXINE SODIUM
     Indication: HYPOTHYROIDISM
     Dosage: 75 MG, UNKNOWN FREQUENCY
     Route: 048
     Dates: start: 1989
  12. ASA [Concomitant]
     Active Substance: ASPIRIN
     Dosage: 100 MG, UNKNOWN FREQUENCY
     Route: 048
  13. INSULIN [Concomitant]
     Active Substance: INSULIN NOS
     Indication: DIABETES MELLITUS
     Dosage: AT NPH DOSE AND UNKNOWN FREQUENCY
     Route: 058
     Dates: start: 2010
  14. FUROSEMIDE. [Concomitant]
     Active Substance: FUROSEMIDE
     Dosage: AT UNKNOWN DOSE AND FREQUENCY ( 60MG STRENGTH)
     Route: 048
  15. SIMVASTATIN. [Concomitant]
     Active Substance: SIMVASTATIN
     Indication: BLOOD CHOLESTEROL INCREASED
     Dosage: 20 MG, UNKNOWN DOSE AND FREQUENCY
     Route: 048

REACTIONS (4)
  - Confusional state [Recovered/Resolved]
  - Immunodeficiency [Unknown]
  - Pneumonia [Recovered/Resolved]
  - Urinary tract infection [Recovered/Resolved]

NARRATIVE: CASE EVENT DATE: 2014
